FAERS Safety Report 21063665 (Version 1)
Quarter: 2022Q3

REPORT INFORMATION
  Report Type: Spontaneous
  Country: IN (occurrence: IN)
  Receive Date: 20220711
  Receipt Date: 20220711
  Transmission Date: 20221027
  Serious: Yes (Hospitalization, Other)
  Sender: FDA-Public Use
  Company Number: IN-ASTELLAS-2022US024305

PATIENT
  Age: 42 Year
  Sex: Female

DRUGS (2)
  1. TARCEVA [Suspect]
     Active Substance: ERLOTINIB HYDROCHLORIDE
     Indication: Renal cell carcinoma
     Route: 048
  2. BEVACIZUMAB [Suspect]
     Active Substance: BEVACIZUMAB
     Indication: Renal cell carcinoma
     Dosage: 10 MG/KG, TWICE WEEKLY (46 CYCLES)
     Route: 065
     Dates: start: 201911

REACTIONS (2)
  - Cholecystitis acute [Unknown]
  - Dermatitis acneiform [Unknown]
